FAERS Safety Report 9183772 (Version 1)
Quarter: 2012Q4

REPORT INFORMATION
  Report Type: 
  Country: FR (occurrence: FR)
  Receive Date: 20121101
  Receipt Date: 20121101
  Transmission Date: 20130627
  Serious: Yes (Hospitalization)
  Sender: FDA-Public Use
  Company Number: FR-PFIZER INC-2012267444

PATIENT
  Age: 79 Year
  Sex: Female

DRUGS (7)
  1. ZITHROMAX [Suspect]
     Indication: ATYPICAL PNEUMONIA
     Dosage: 250 mg, 1x/day
     Route: 048
     Dates: start: 201208, end: 20121003
  2. ROCEPHINE [Suspect]
     Indication: ATYPICAL PNEUMONIA
     Dosage: UNK
     Route: 048
     Dates: start: 20120927, end: 20120930
  3. AUGMENTIN [Concomitant]
     Indication: ATYPICAL PNEUMONIA
     Dosage: UNK
     Route: 048
     Dates: start: 20120913, end: 20120921
  4. ZYLORIC ^FAES^ [Concomitant]
     Dosage: 200 mg, 1x/day
     Route: 048
     Dates: start: 2011
  5. LOXEN [Concomitant]
     Dosage: 20 mg, 1x/day
     Route: 048
     Dates: start: 2011
  6. TAREG [Concomitant]
     Dosage: 80 mg, 1x/day
     Route: 048
     Dates: start: 2011
  7. LANTUS [Concomitant]
     Dosage: 12 IU, 1x/day
     Route: 058
     Dates: start: 2011

REACTIONS (2)
  - Rash macular [Recovering/Resolving]
  - Stomatitis [Recovered/Resolved]
